FAERS Safety Report 10531352 (Version 1)
Quarter: 2014Q4

REPORT INFORMATION
  Report Type: Report from Study
  Country: KR (occurrence: KR)
  Receive Date: 20141021
  Receipt Date: 20141021
  Transmission Date: 20150529
  Serious: No
  Sender: FDA-Public Use
  Company Number: PHHY2014KR136413

PATIENT
  Age: 66 Year
  Sex: Male

DRUGS (4)
  1. AMN107 [Suspect]
     Active Substance: NILOTINIB
     Dosage: 300 MG/ DAY
     Route: 048
     Dates: start: 20131205
  2. FAMOTIDINE. [Concomitant]
     Active Substance: FAMOTIDINE
     Indication: ABDOMINAL PAIN
     Dosage: 60 MG, UNK
     Route: 048
     Dates: start: 20131205
  3. TIROPRAMIDE [Concomitant]
     Indication: ABDOMINAL PAIN
     Dosage: 300 MG, UNK
     Route: 048
     Dates: start: 20131205, end: 20131219
  4. AMN107 [Suspect]
     Active Substance: NILOTINIB
     Indication: CHRONIC MYELOID LEUKAEMIA
     Dosage: 600 MG/DAY
     Route: 048
     Dates: start: 20131122, end: 20131204

REACTIONS (1)
  - Upper respiratory tract infection [Recovered/Resolved]

NARRATIVE: CASE EVENT DATE: 20131219
